FAERS Safety Report 7471908-8 (Version None)
Quarter: 2011Q2

REPORT INFORMATION
  Report Type: 
  Country: None (occurrence: None)
  Receive Date: 20110511
  Receipt Date: 20100630
  Transmission Date: 20111010
  Serious: No
  Sender: FDA-Public Use
  Company Number: A0869563A

PATIENT
  Sex: Female

DRUGS (3)
  1. TYKERB [Suspect]
     Dosage: 1250MGD PER DAY
     Route: 048
     Dates: start: 20100312
  2. XELODA [Suspect]
     Route: 065
  3. HERCEPTIN [Suspect]
     Route: 065

REACTIONS (3)
  - SKIN EXFOLIATION [None]
  - SKIN DISCOLOURATION [None]
  - DRY SKIN [None]
